FAERS Safety Report 14363866 (Version 1)
Quarter: 2018Q1

REPORT INFORMATION
  Report Type: Spontaneous
  Country: ES (occurrence: ES)
  Receive Date: 20180108
  Receipt Date: 20180108
  Transmission Date: 20180509
  Serious: Yes (Other)
  Sender: FDA-Public Use
  Company Number: ES-PFIZER INC-2018005942

PATIENT
  Age: 24 Year
  Sex: Female
  Weight: 59 kg

DRUGS (1)
  1. LYRICA [Suspect]
     Active Substance: PREGABALIN
     Indication: NECK PAIN
     Dosage: 75 MG, 1X/DAY
     Route: 048
     Dates: start: 20171125, end: 20171127

REACTIONS (1)
  - Atrioventricular block [Unknown]

NARRATIVE: CASE EVENT DATE: 20171127
